FAERS Safety Report 7348241-8 (Version None)
Quarter: 2011Q1

REPORT INFORMATION
  Report Type: 
  Country: None (occurrence: None)
  Receive Date: 20110222
  Receipt Date: 20100310
  Transmission Date: 20110831
  Serious: Yes (Life-Threatening)
  Sender: FDA-Public Use
  Company Number: 2010022264

PATIENT
  Sex: Female
  Weight: 132.9039 kg

DRUGS (28)
  1. PHENERGEN (PROMETHAZINE) [Concomitant]
  2. ROBAXIN [Concomitant]
  3. METFORMIN HCL (METFORMIN HYDROCHLORIDE) [Concomitant]
  4. VITAMIN B12 [Concomitant]
  5. ABILIFY (ARIPIRAZOLE) [Concomitant]
  6. VIVAGLOBIN [Suspect]
     Indication: IMMUNODEFICIENCY COMMON VARIABLE
     Dosage: SEE IMAGE, SUBCUTANEOUS
     Route: 058
     Dates: start: 20100107, end: 20100312
  7. AMLODIPINE BESYLATE [Concomitant]
  8. FEXOFENADINE HCL (GALENIC /FEXOFENADINE HCL/PSEUDOEPHEDRINE/) [Concomitant]
  9. PREVACID [Concomitant]
  10. ZANAFLEX [Concomitant]
  11. OXYCODONE (OXYCODONE) [Concomitant]
  12. AGGRENOX SA (ASASANTIN) [Concomitant]
  13. FOLIC ACID [Concomitant]
  14. CYMBALTA [Concomitant]
  15. ESTRADIOL [Concomitant]
  16. TENEX [Concomitant]
  17. EXCEDRIN (MIGRAINE) [Concomitant]
  18. VIVAGLOBIN [Suspect]
  19. ZOCOR [Concomitant]
  20. REQUIP [Concomitant]
  21. PROVENTIL [Concomitant]
  22. LISINOPRIL [Concomitant]
  23. GUAIFENESIN [Concomitant]
  24. FLONASE [Concomitant]
  25. FERROUS SULFATE TAB [Concomitant]
  26. KLONOPIN [Concomitant]
  27. INDERAL [Concomitant]
  28. LAMICTAL [Concomitant]

REACTIONS (1)
  - DYSPNOEA [None]
